FAERS Safety Report 10157617 (Version 1)
Quarter: 2014Q2

REPORT INFORMATION
  Report Type: Spontaneous
  Country: US (occurrence: US)
  Receive Date: 20140507
  Receipt Date: 20140507
  Transmission Date: 20141212
  Serious: Yes (Other)
  Sender: FDA-Public Use
  Company Number: US-PFIZER INC-2014123885

PATIENT
  Sex: Female

DRUGS (3)
  1. PREMARIN [Suspect]
     Indication: HOT FLUSH
     Dosage: 1.2 MG, UNK
  2. PREMARIN [Suspect]
     Dosage: 0.9 MG, UNK
  3. PREMARIN [Suspect]
     Dosage: 0.5 G, UNK

REACTIONS (3)
  - Uterine disorder [Unknown]
  - Rectocele [Unknown]
  - Drug ineffective [Recovered/Resolved]
